FAERS Safety Report 15491514 (Version 1)
Quarter: 2018Q4

REPORT INFORMATION
  Report Type: Spontaneous
  Country: US (occurrence: US)
  Receive Date: 20181012
  Receipt Date: 20181012
  Transmission Date: 20190205
  Serious: No
  Sender: FDA-Public Use
  Company Number: US-ASTRAZENECA-2018SF18729

PATIENT
  Age: 19 Year
  Sex: Female

DRUGS (1)
  1. FASENRA [Suspect]
     Active Substance: BENRALIZUMAB
     Indication: ASTHMA
     Dosage: 30 MG/ML SINGLE-DOSE PREFILLED SYRINGE
     Route: 058

REACTIONS (3)
  - Diarrhoea [Unknown]
  - Gastrointestinal disorder [Unknown]
  - Forced expiratory volume increased [Unknown]
